FAERS Safety Report 24719858 (Version 1)
Quarter: 2024Q4

REPORT INFORMATION
  Report Type: Spontaneous
  Country: CN (occurrence: CN)
  Receive Date: 20241211
  Receipt Date: 20241211
  Transmission Date: 20250115
  Serious: Yes (Other)
  Sender: BAXTER
  Company Number: None

PATIENT
  Age: 55 Year
  Sex: Female
  Weight: 76 kg

DRUGS (6)
  1. CYCLOPHOSPHAMIDE [Suspect]
     Active Substance: CYCLOPHOSPHAMIDE
     Indication: Breast cancer
     Dosage: 0.85 G, ONE TIME IN ONE DAY, DILUTED WITH 0.9% 500ML OF SODIUM CHLORIDE
     Route: 041
     Dates: start: 20241112, end: 20241112
  2. SODIUM CHLORIDE [Suspect]
     Active Substance: SODIUM CHLORIDE
     Indication: Medication dilution
     Dosage: 0.9 % 500 ML, ONE TIME IN ONE DAY, USED TO DILUTE CYCLOPHOSPHAMIDE 0.85 G
     Route: 041
     Dates: start: 20241112, end: 20241112
  3. DEXTROSE [Suspect]
     Active Substance: DEXTROSE MONOHYDRATE
     Indication: Medication dilution
     Dosage: 5 % 250 ML, ONE TIME IN ONE DAY, USED TO DILUTE DOXORUBICIN HYDROCHLORIDE FOR INJECTION 85 MG
     Route: 041
     Dates: start: 20241112, end: 20241112
  4. DEXTROSE [Suspect]
     Active Substance: DEXTROSE MONOHYDRATE
     Dosage: 5 % 250 ML, ONE TIME IN ONE DAY, USED TO DILUTE DOCETAXEL INJECTION 125 MG
     Route: 041
     Dates: start: 20241112, end: 20241112
  5. DOCETAXEL [Suspect]
     Active Substance: DOCETAXEL
     Indication: Breast cancer
     Dosage: 125 MG, ONE TIME IN ONE DAY, DILUTED WITH 5 % 250ML OF GLUCOSE
     Route: 041
     Dates: start: 20241112, end: 20241112
  6. DOXORUBICIN HYDROCHLORIDE [Suspect]
     Active Substance: DOXORUBICIN HYDROCHLORIDE
     Indication: Breast cancer
     Dosage: 85 MG, ONE TIME IN ONE DAY, DILUTED WITH 5 % 250ML OF GLUCOSE
     Route: 041
     Dates: start: 20241112, end: 20241112

REACTIONS (3)
  - Myelosuppression [Recovered/Resolved]
  - White blood cell count decreased [Recovered/Resolved]
  - Neutrophil count decreased [Recovered/Resolved]

NARRATIVE: CASE EVENT DATE: 20241118
